FAERS Safety Report 5480977-6 (Version None)
Quarter: 2007Q4

REPORT INFORMATION
  Report Type: 
  Country: None (occurrence: None)
  Receive Date: 20071009
  Receipt Date: 20070927
  Transmission Date: 20080405
  Serious: Yes (Other)
  Sender: FDA-Public Use
  Company Number: US-PFIZER INC-2007067662

PATIENT
  Sex: Female
  Weight: 68 kg

DRUGS (19)
  1. CHANTIX [Suspect]
     Indication: SMOKING CESSATION THERAPY
     Dates: start: 20070801, end: 20070901
  2. WARFARIN SODIUM [Concomitant]
  3. OMACOR [Concomitant]
     Indication: BLOOD CHOLESTEROL INCREASED
  4. LEXAPRO [Concomitant]
  5. XANAX [Concomitant]
  6. REQUIP [Concomitant]
     Indication: RESTLESS LEGS SYNDROME
  7. DEPAKOTE [Concomitant]
  8. TRAZODONE HCL [Concomitant]
  9. OXYCONTIN [Concomitant]
  10. THEOPHYLLINE [Concomitant]
     Indication: DYSPNOEA
  11. ZYRTEC [Concomitant]
  12. NEXIUM [Concomitant]
  13. IBANDRONATE SODIUM [Concomitant]
     Indication: OSTEOPOROSIS
  14. TRIOBE [Concomitant]
  15. CYMBALTA [Concomitant]
  16. AMBIEN [Concomitant]
  17. LORTAB [Concomitant]
  18. ADVAIR DISKUS 100/50 [Concomitant]
  19. CIPRODEX [Concomitant]

REACTIONS (3)
  - HEADACHE [None]
  - HYPERSENSITIVITY [None]
  - LOSS OF CONSCIOUSNESS [None]
